FAERS Safety Report 6561380-4 (Version None)
Quarter: 2010Q1

REPORT INFORMATION
  Report Type: 
  Country: None (occurrence: None)
  Receive Date: 20100130
  Receipt Date: 20091013
  Transmission Date: 20100710
  Serious: No
  Sender: FDA-Public Use
  Company Number: US-ABBOTT-09P-163-0603027-00

PATIENT
  Sex: Female

DRUGS (2)
  1. HUMIRA [Suspect]
     Indication: UVEITIS
     Route: 050
     Dates: start: 20090701
  2. HUMIRA [Suspect]
     Indication: COLITIS

REACTIONS (1)
  - EYE PAIN [None]
